FAERS Safety Report 14102732 (Version 1)
Quarter: 2017Q4

REPORT INFORMATION
  Report Type: Spontaneous
  Country: CN (occurrence: CN)
  Receive Date: 20171018
  Receipt Date: 20171018
  Transmission Date: 20180321
  Serious: Yes (Other)
  Sender: FDA-Public Use
  Company Number: CN-PFIZER INC-2017445585

PATIENT
  Age: 68 Year
  Sex: Male
  Weight: 67 kg

DRUGS (5)
  1. DALACLIN [Concomitant]
     Indication: LUNG INFECTION
     Dosage: 0.6 G, 2X/DAY
     Route: 041
     Dates: start: 20170731, end: 20170814
  2. LIPITOR [Suspect]
     Active Substance: ATORVASTATIN CALCIUM
     Indication: HYPERLIPIDAEMIA
     Dosage: 40 MG, 1X/DAY
     Route: 048
     Dates: start: 20170718, end: 20170807
  3. ACETYLSALICYLIC ACID ENTERIC COATED [Suspect]
     Active Substance: ASPIRIN
     Indication: COAGULOPATHY
     Dosage: 0.2 G, 1X/DAY
     Route: 048
     Dates: start: 20170718, end: 20170807
  4. LAI LI XIN [Concomitant]
     Active Substance: LEVOFLOXACIN
     Indication: LUNG INFECTION
     Dosage: 0.5 G, 1X/DAY
     Route: 041
     Dates: start: 20170804, end: 20170816
  5. EDARAVONE [Concomitant]
     Active Substance: EDARAVONE
     Indication: ANTIOXIDANT THERAPY
     Dosage: 30 MG, 2X/DAY
     Route: 041
     Dates: start: 20170718, end: 20170730

REACTIONS (2)
  - Transaminases increased [Recovering/Resolving]
  - Lung infection [Unknown]

NARRATIVE: CASE EVENT DATE: 20170807
